FAERS Safety Report 12636817 (Version 1)
Quarter: 2016Q3

REPORT INFORMATION
  Report Type: Report from Study
  Country: US (occurrence: US)
  Receive Date: 20160809
  Receipt Date: 20160809
  Transmission Date: 20161109
  Serious: Yes (Life-Threatening, Hospitalization, Other)
  Sender: FDA-Public Use
  Company Number: PHHO2015US002234

PATIENT
  Age: 25 Year
  Sex: Male
  Weight: 80.2 kg

DRUGS (5)
  1. FLUDARABINE PHOSPHATE. [Suspect]
     Active Substance: FLUDARABINE PHOSPHATE
     Indication: ACUTE LYMPHOCYTIC LEUKAEMIA
     Dosage: UNK
     Route: 065
  2. CTL019 [Suspect]
     Active Substance: TISAGENLECLEUCEL-T
     Dosage: 30 PERCENT OF THE DOSE, 3.0E+08 TOTAL CELLS
     Route: 042
     Dates: start: 20150204, end: 20150204
  3. CYTOXAN [Concomitant]
     Active Substance: CYCLOPHOSPHAMIDE
     Indication: ACUTE LYMPHOCYTIC LEUKAEMIA
     Dosage: 3600 MG, UNK
     Route: 042
     Dates: start: 20150128, end: 20150130
  4. CTL019 [Suspect]
     Active Substance: TISAGENLECLEUCEL-T
     Indication: ACUTE LYMPHOCYTIC LEUKAEMIA
     Dosage: 10 PERCENT OF THE DOSE, 2.0E+07 CART19 T CELLS
     Route: 042
     Dates: start: 20150203, end: 20150203
  5. CTL019 [Suspect]
     Active Substance: TISAGENLECLEUCEL-T
     Dosage: 10% DOSE (5.0E+07 CART19 T CELLS, 3.68E+08 TOTAL CELLS)
     Route: 042
     Dates: start: 20160524, end: 20160524

REACTIONS (2)
  - Cytokine release syndrome [Recovered/Resolved]
  - Cytokine release syndrome [Recovered/Resolved]

NARRATIVE: CASE EVENT DATE: 20150205
